FAERS Safety Report 7569797-6 (Version None)
Quarter: 2011Q2

REPORT INFORMATION
  Report Type: 
  Country: None (occurrence: None)
  Receive Date: 20110624
  Receipt Date: 20110615
  Transmission Date: 20111010
  Serious: Yes (Other)
  Sender: FDA-Public Use
  Company Number: US-JNJFOC-20101202815

PATIENT
  Sex: Female
  Weight: 58.06 kg

DRUGS (8)
  1. TOPAMAX [Suspect]
     Indication: MIGRAINE PROPHYLAXIS
     Route: 048
     Dates: start: 20030101
  2. IMITREX [Concomitant]
     Indication: MIGRAINE PROPHYLAXIS
     Dosage: AS NEEDED
     Route: 048
     Dates: start: 20010101
  3. SYNTHROID [Concomitant]
     Indication: THYROID DISORDER
     Route: 048
     Dates: start: 19730101
  4. TOPAMAX [Suspect]
     Route: 048
     Dates: start: 20110101
  5. UNKNOWN MEDICATION [Suspect]
     Indication: THYROID DISORDER
     Route: 065
  6. TOPAMAX [Suspect]
     Route: 048
     Dates: start: 20100101, end: 20110101
  7. TOPAMAX [Suspect]
     Route: 048
     Dates: start: 20010101, end: 20100901
  8. VERPAMIL HCL [Concomitant]
     Indication: MIGRAINE PROPHYLAXIS
     Route: 048

REACTIONS (5)
  - ANXIETY [None]
  - THYROID DISORDER [None]
  - DRY SKIN [None]
  - CHILLS [None]
  - MIGRAINE [None]
